FAERS Safety Report 4742393-1 (Version None)
Quarter: 2005Q3

REPORT INFORMATION
  Report Type: 
  Country: None (occurrence: None)
  Receive Date: 20050811
  Receipt Date: 20050808
  Transmission Date: 20060218
  Serious: Yes (Other)
  Sender: FDA-Public Use
  Company Number: JP-SP-2005-01521

PATIENT
  Age: 77 Year

DRUGS (1)
  1. IMMUCYST [Suspect]
     Indication: BLADDER CANCER
     Route: 043
     Dates: start: 20050523, end: 20050711

REACTIONS (2)
  - DYSURIA [None]
  - HAEMATURIA [None]
